FAERS Safety Report 25112168 (Version 1)
Quarter: 2025Q1

REPORT INFORMATION
  Report Type: Spontaneous
  Country: US (occurrence: US)
  Receive Date: 20250324
  Receipt Date: 20250324
  Transmission Date: 20250408
  Serious: No
  Sender: ROCHE
  Company Number: US-ROCHE-10000235174

PATIENT
  Age: 55 Year
  Sex: Female

DRUGS (2)
  1. OCREVUS ZUNOVO [Suspect]
     Active Substance: HYALURONIDASE-OCSQ\OCRELIZUMAB
     Indication: Secondary progressive multiple sclerosis
     Route: 058
     Dates: start: 20241011
  2. LYRICA [Concomitant]
     Active Substance: PREGABALIN

REACTIONS (3)
  - Pain [Not Recovered/Not Resolved]
  - Balance disorder [Not Recovered/Not Resolved]
  - Hypotonia [Not Recovered/Not Resolved]
